FAERS Safety Report 4980497-9 (Version None)
Quarter: 2006Q2

REPORT INFORMATION
  Report Type: 
  Country: None (occurrence: None)
  Receive Date: 20060424
  Receipt Date: 20060329
  Transmission Date: 20061013
  Serious: Yes (Other)
  Sender: FDA-Public Use
  Company Number: JP-AVENTIS-200611027JP

PATIENT
  Age: 82 Year
  Sex: Female

DRUGS (2)
  1. TAXOTERE [Suspect]
     Indication: FALLOPIAN TUBE CANCER
     Route: 041
     Dates: start: 20060309
  2. PARAPLATIN [Concomitant]
     Indication: FALLOPIAN TUBE CANCER
     Dates: start: 20060309

REACTIONS (4)
  - HAEMATEMESIS [None]
  - HAEMOGLOBIN DECREASED [None]
  - OESOPHAGEAL ULCER [None]
  - REFLUX OESOPHAGITIS [None]
